FAERS Safety Report 24656971 (Version 5)
Quarter: 2025Q2

REPORT INFORMATION
  Report Type: Spontaneous
  Country: ES (occurrence: ES)
  Receive Date: 20241125
  Receipt Date: 20250514
  Transmission Date: 20250717
  Serious: No
  Sender: ORGANON
  Company Number: ES-PFIZER INC-PV202400145371

PATIENT
  Age: 64 Year
  Sex: Female

DRUGS (4)
  1. MIRTAZAPINE [Suspect]
     Active Substance: MIRTAZAPINE
     Indication: Depression
  2. DESVENLAFAXINE SUCCINATE [Suspect]
     Active Substance: DESVENLAFAXINE SUCCINATE
     Indication: Depression
  3. TOPIRAMATE [Suspect]
     Active Substance: TOPIRAMATE
     Indication: Depression
  4. LITHIUM [Suspect]
     Active Substance: LITHIUM
     Indication: Depression

REACTIONS (1)
  - Drug ineffective [Unknown]
